FAERS Safety Report 11825673 (Version 1)
Quarter: 2015Q4

REPORT INFORMATION
  Report Type: Spontaneous
  Country: US (occurrence: US)
  Receive Date: 20151211
  Receipt Date: 20151211
  Transmission Date: 20160305
  Serious: No
  Sender: FDA-Public Use
  Company Number: US-JNJFOC-20150622706

PATIENT
  Age: 83 Year
  Sex: Female

DRUGS (7)
  1. VALTREX [Concomitant]
     Active Substance: VALACYCLOVIR HYDROCHLORIDE
  2. CALCIUM [Concomitant]
     Active Substance: CALCIUM
  3. FERROUS SULFATE [Concomitant]
     Active Substance: FERROUS SULFATE\FERROUS SULFATE, DRIED
  4. CLARITIN [Concomitant]
     Active Substance: LORATADINE
  5. MULTIVITAMINS [Concomitant]
     Active Substance: VITAMINS
  6. IMBRUVICA [Suspect]
     Active Substance: IBRUTINIB
     Indication: CHRONIC LYMPHOCYTIC LEUKAEMIA
     Route: 048
     Dates: start: 20140422
  7. SYNTHROID [Concomitant]
     Active Substance: LEVOTHYROXINE SODIUM

REACTIONS (5)
  - Oral disorder [Unknown]
  - Incorrect dose administered [Recovered/Resolved]
  - Diarrhoea [Unknown]
  - Malaise [Unknown]
  - Stomatitis [Unknown]

NARRATIVE: CASE EVENT DATE: 20140423
